FAERS Safety Report 4939916-6 (Version None)
Quarter: 2006Q1

REPORT INFORMATION
  Report Type: 
  Country: None (occurrence: None)
  Receive Date: 20060310
  Receipt Date: 20041203
  Transmission Date: 20060701
  Serious: Yes (Other)
  Sender: FDA-Public Use
  Company Number: GB-GLAXOSMITHKLINE-B0359701A

PATIENT
  Sex: Male

DRUGS (1)
  1. SEROXAT [Suspect]
     Indication: DEPRESSION
     Route: 065

REACTIONS (7)
  - ANXIETY [None]
  - CHEST DISCOMFORT [None]
  - COMPLETED SUICIDE [None]
  - DEPRESSED MOOD [None]
  - NOCTURNAL DYSPNOEA [None]
  - RESTLESS LEGS SYNDROME [None]
  - WEIGHT DECREASED [None]
